FAERS Safety Report 8860017 (Version 2)
Quarter: 2013Q4

REPORT INFORMATION
  Report Type: Spontaneous
  Country: US (occurrence: US)
  Receive Date: 20121025
  Receipt Date: 20131226
  Transmission Date: 20140711
  Serious: Yes (Hospitalization)
  Sender: FDA-Public Use
  Company Number: US-BAYER-2012-111296

PATIENT
  Age: 33 Year
  Sex: Female
  Weight: 71.66 kg

DRUGS (2)
  1. YAZ [Suspect]
     Dosage: UNK
     Dates: start: 201006, end: 20110327
  2. CENTRUM [Concomitant]
     Dosage: 1 DF, UNK
     Dates: start: 20110326

REACTIONS (8)
  - Cerebrovascular accident [None]
  - Injury [None]
  - Amnesia [None]
  - Disturbance in attention [None]
  - Nerve injury [None]
  - Cognitive disorder [None]
  - Asthenia [None]
  - Coordination abnormal [None]
